FAERS Safety Report 14519846 (Version 1)
Quarter: 2018Q1

REPORT INFORMATION
  Report Type: Spontaneous
  Country: US (occurrence: US)
  Receive Date: 20180210
  Receipt Date: 20180210
  Transmission Date: 20180509
  Serious: Yes (Other)
  Sender: FDA-Public Use
  Company Number: None

PATIENT
  Age: 38 Year
  Sex: Male
  Weight: 84.82 kg

DRUGS (1)
  1. BUPRENORPHINE /NALOXONE 8-2 MG [Suspect]
     Active Substance: BUPRENORPHINE\NALOXONE
     Indication: DRUG DEPENDENCE
     Dosage: DOSE - 8-2 MG
     Route: 060
     Dates: start: 20171206, end: 20180207

REACTIONS (4)
  - Nausea [None]
  - Vomiting [None]
  - Cold sweat [None]
  - Product dosage form issue [None]

NARRATIVE: CASE EVENT DATE: 20171206
